FAERS Safety Report 4950237-8 (Version None)
Quarter: 2006Q1

REPORT INFORMATION
  Report Type: 
  Country: None (occurrence: None)
  Receive Date: 20060322
  Receipt Date: 20060309
  Transmission Date: 20060701
  Serious: Yes (Hospitalization)
  Sender: FDA-Public Use
  Company Number: DE-JNJFOC-20060302843

PATIENT
  Age: 47 Year
  Sex: Male

DRUGS (2)
  1. HALDOL [Suspect]
  2. AKINETON [Concomitant]
     Route: 048

REACTIONS (3)
  - AKATHISIA [None]
  - DRUG TOXICITY [None]
  - SUICIDE ATTEMPT [None]
